FAERS Safety Report 16283568 (Version 3)
Quarter: 2019Q2

REPORT INFORMATION
  Report Type: Spontaneous
  Country: US (occurrence: US)
  Receive Date: 20190507
  Receipt Date: 20190606
  Transmission Date: 20190711
  Serious: No
  Sender: FDA-Public Use
  Company Number: US-SA-2019SA119782

PATIENT
  Age: 92 Year
  Sex: Female
  Weight: 55.79 kg

DRUGS (1)
  1. LANTUS SOLOSTAR [Suspect]
     Active Substance: INSULIN GLARGINE
     Indication: TYPE 2 DIABETES MELLITUS
     Dosage: 5 TO 15 UNITS, QD
     Route: 065
     Dates: start: 20171115

REACTIONS (4)
  - Injury associated with device [Unknown]
  - Needle issue [Unknown]
  - Device operational issue [Unknown]
  - Incorrect dose administered [Unknown]

NARRATIVE: CASE EVENT DATE: 20190420
